FAERS Safety Report 8060911-5 (Version None)
Quarter: 2012Q1

REPORT INFORMATION
  Report Type: 
  Country: None (occurrence: None)
  Receive Date: 20120120
  Receipt Date: 20110321
  Transmission Date: 20120608
  Serious: No
  Sender: FDA-Public Use
  Company Number: US-ALLERGAN-1103983US

PATIENT
  Sex: Female

DRUGS (2)
  1. REFRESH PM [Concomitant]
     Indication: PRODUCT USED FOR UNKNOWN INDICATION
  2. RESTASIS [Suspect]
     Indication: PRODUCT USED FOR UNKNOWN INDICATION
     Dosage: UNK
     Dates: start: 20040905, end: 20110106

REACTIONS (2)
  - PHOTOPHOBIA [None]
  - EYE PAIN [None]
